FAERS Safety Report 6682490-7 (Version None)
Quarter: 2010Q2

REPORT INFORMATION
  Report Type: 
  Country: None (occurrence: None)
  Receive Date: 20100415
  Receipt Date: 20100412
  Transmission Date: 20101027
  Serious: Yes (Death)
  Sender: FDA-Public Use
  Company Number: PHHY2010MX22863

PATIENT
  Age: 48 Year
  Sex: Female

DRUGS (2)
  1. DIOVAN [Suspect]
     Dosage: 160 MG
  2. GALVUS MET [Concomitant]
     Dosage: 500/50 MG

REACTIONS (1)
  - DEATH [None]
